FAERS Safety Report 14551497 (Version 1)
Quarter: 2018Q1

REPORT INFORMATION
  Report Type: Spontaneous
  Country: US (occurrence: US)
  Receive Date: 20180220
  Receipt Date: 20180220
  Transmission Date: 20180509
  Serious: Yes (Other)
  Sender: FDA-Public Use
  Company Number: US-CONCORDIA PHARMACEUTICALS INC.-GSH201802-000636

PATIENT
  Sex: Female

DRUGS (12)
  1. PROMETHAZINE [Concomitant]
     Active Substance: PROMETHAZINE\PROMETHAZINE HYDROCHLORIDE
     Route: 048
     Dates: start: 20141104
  2. GABAPENTIN. [Concomitant]
     Active Substance: GABAPENTIN
  3. ALLEGRA 180 MG TABLET [Concomitant]
     Route: 048
     Dates: start: 20130917
  4. LYRICA [Concomitant]
     Active Substance: PREGABALIN
     Dosage: 60 CAPSULES (TOOK 1 CAPSULE ORAL TWICE A DAY AS DIRECTED
     Route: 048
     Dates: start: 20180117
  5. HYDROXYCHLOROQUINE 200 MG TABLET [Suspect]
     Active Substance: HYDROXYCHLOROQUINE
     Route: 048
     Dates: start: 20141104
  6. LEXAPRO [Concomitant]
     Active Substance: ESCITALOPRAM OXALATE
     Dosage: 5MG/5 ML SOLUTION (TOOK 20 MILLILITERS ORAL EVERY MORNING AS DIRECTED TO TAKE), 20 CC TEASPOON DAILY
     Route: 048
     Dates: start: 20150811
  7. MELATONIN [Concomitant]
     Active Substance: MELATONIN
  8. EFFEXOR [Concomitant]
     Active Substance: VENLAFAXINE HYDROCHLORIDE
  9. CYMBALTA [Concomitant]
     Active Substance: DULOXETINE HYDROCHLORIDE
  10. PROZAC [Concomitant]
     Active Substance: FLUOXETINE HYDROCHLORIDE
  11. ARMOUR THYROID 90 MG TABLET [Concomitant]
     Route: 048
     Dates: start: 20151016
  12. FLONASE 50 MCG/ACTUATION SPRAY [Concomitant]
     Dosage: 1-2 SPRAY ONCE A DAY
     Route: 045
     Dates: start: 20130917

REACTIONS (2)
  - Drug hypersensitivity [Unknown]
  - Alopecia [Unknown]
